FAERS Safety Report 13980236 (Version 1)
Quarter: 2017Q3

REPORT INFORMATION
  Report Type: Spontaneous
  Country: NO (occurrence: NO)
  Receive Date: 20170917
  Receipt Date: 20170917
  Transmission Date: 20171128
  Serious: Yes (Other)
  Sender: FDA-Public Use
  Company Number: NO-MYLANLABS-2017M1056822

PATIENT
  Age: 41 Year
  Sex: Male

DRUGS (1)
  1. FINASTERIDE. [Suspect]
     Active Substance: FINASTERIDE
     Indication: PRODUCT USED FOR UNKNOWN INDICATION

REACTIONS (32)
  - Condition aggravated [Recovered/Resolved]
  - Genital disorder male [Unknown]
  - Visual impairment [Unknown]
  - Skin irritation [Unknown]
  - Paraesthesia [Recovering/Resolving]
  - Off label use [Unknown]
  - Adverse drug reaction [Unknown]
  - Dry skin [Unknown]
  - Headache [Recovering/Resolving]
  - Penile size reduced [Recovering/Resolving]
  - Poisoning [Unknown]
  - Abdominal discomfort [Unknown]
  - Anorgasmia [Unknown]
  - Brain injury [Unknown]
  - Hypotonia [Unknown]
  - Tinnitus [Recovering/Resolving]
  - Ejaculation disorder [Unknown]
  - Body fat disorder [Unknown]
  - Breast disorder male [Unknown]
  - Eczema [Unknown]
  - Lid sulcus deepened [Not Recovered/Not Resolved]
  - Infection susceptibility increased [Unknown]
  - Mental impairment [Unknown]
  - Erythema [Unknown]
  - Suicidal ideation [Unknown]
  - Testicular disorder [Unknown]
  - Androgens abnormal [Unknown]
  - Anosmia [Unknown]
  - Vitiligo [Unknown]
  - Fatigue [Unknown]
  - Formication [Unknown]
  - Loss of libido [Unknown]
